FAERS Safety Report 10486270 (Version 1)
Quarter: 2014Q4

REPORT INFORMATION
  Report Type: Spontaneous
  Country: IL (occurrence: IL)
  Receive Date: 20141001
  Receipt Date: 20141001
  Transmission Date: 20150528
  Serious: Yes (Other)
  Sender: FDA-Public Use
  Company Number: PHHY2014IL124091

PATIENT
  Age: 3 Year
  Sex: Female
  Weight: 15 kg

DRUGS (6)
  1. KEPPRA [Concomitant]
     Active Substance: LEVETIRACETAM
     Indication: EPILEPSY
     Dosage: 750 MG, UNK
  2. LAMICTAL [Concomitant]
     Active Substance: LAMOTRIGINE
     Indication: EPILEPSY
     Dosage: 100 MG, UNK
  3. TRILEPTIN [Suspect]
     Active Substance: OXCARBAZEPINE
     Indication: EPILEPSY
     Dosage: 600 MG, UNK
     Dates: start: 201404
  4. TRILEPTIN [Suspect]
     Active Substance: OXCARBAZEPINE
     Dosage: 450 MG, UNK
  5. TRILEPTIN [Suspect]
     Active Substance: OXCARBAZEPINE
     Dosage: 150 MG, BID
  6. TEGRETOL [Suspect]
     Active Substance: CARBAMAZEPINE
     Indication: EPILEPSY
     Dosage: UNK UKN, UNK

REACTIONS (5)
  - Speech disorder developmental [Unknown]
  - Autism [Unknown]
  - Abnormal behaviour [Not Recovered/Not Resolved]
  - Developmental delay [Unknown]
  - Eye movement disorder [Recovering/Resolving]
